FAERS Safety Report 7391386-7 (Version None)
Quarter: 2011Q2

REPORT INFORMATION
  Report Type: 
  Country: None (occurrence: None)
  Receive Date: 20110404
  Receipt Date: 20110321
  Transmission Date: 20111010
  Serious: Yes (Hospitalization)
  Sender: FDA-Public Use
  Company Number: FR-CELGENEUS-056-21880-11032497

PATIENT
  Sex: Female

DRUGS (7)
  1. NEFOPAM [Concomitant]
     Route: 065
  2. LASIX [Concomitant]
     Route: 065
  3. RAMIPRIL [Concomitant]
     Route: 065
  4. NEXIUM [Concomitant]
     Route: 065
  5. AMLODIPINE [Concomitant]
     Route: 065
  6. REVLIMID [Suspect]
     Route: 048
     Dates: start: 20101201
  7. REVLIMID [Suspect]
     Dosage: 5 MILLIGRAM
     Route: 048
     Dates: start: 20110110, end: 20110114

REACTIONS (3)
  - PYREXIA [None]
  - HEPATITIS CHOLESTATIC [None]
  - ANAEMIA [None]
